FAERS Safety Report 12913208 (Version 1)
Quarter: 2016Q4

REPORT INFORMATION
  Report Type: Spontaneous
  Country: US (occurrence: US)
  Receive Date: 20161104
  Receipt Date: 20161104
  Transmission Date: 20170207
  Serious: No
  Sender: FDA-Public Use
  Company Number: US-009507513-1610USA010930

PATIENT
  Age: 56 Year
  Sex: Female

DRUGS (2)
  1. BELSOMRA [Suspect]
     Active Substance: SUVOREXANT
     Indication: INSOMNIA
     Dosage: 10 MG, QPM
     Route: 048
     Dates: start: 201610, end: 201610
  2. BELSOMRA [Suspect]
     Active Substance: SUVOREXANT
     Dosage: 20 MG, QPM
     Route: 048
     Dates: start: 201610, end: 201610

REACTIONS (3)
  - Palpitations [Recovered/Resolved]
  - Drug ineffective [Unknown]
  - Tachyphrenia [Recovered/Resolved]

NARRATIVE: CASE EVENT DATE: 201610
